FAERS Safety Report 23089559 (Version 1)
Quarter: 2023Q4

REPORT INFORMATION
  Report Type: Spontaneous
  Country: US (occurrence: None)
  Receive Date: 20231019
  Receipt Date: 20231019
  Transmission Date: 20240109
  Serious: Yes (Hospitalization, Other)
  Sender: FDA-Public Use
  Company Number: None

PATIENT
  Age: 48 Year
  Sex: Male
  Weight: 121.4 kg

DRUGS (1)
  1. TIGECYCLINE [Suspect]
     Active Substance: TIGECYCLINE
     Indication: Prostatitis
     Dosage: FREQUENCY : 4 TIMES A DAY;?
     Route: 040

REACTIONS (5)
  - Complication associated with device [None]
  - Medical device site pain [None]
  - Pain in extremity [None]
  - Chest pain [None]
  - Deep vein thrombosis [None]

NARRATIVE: CASE EVENT DATE: 20230814
